FAERS Safety Report 12728947 (Version 1)
Quarter: 2016Q3

REPORT INFORMATION
  Report Type: Spontaneous
  Country: JP (occurrence: JP)
  Receive Date: 20160909
  Receipt Date: 20160909
  Transmission Date: 20161109
  Serious: Yes (Death)
  Sender: FDA-Public Use
  Company Number: JP-JNJFOC-20160907656

PATIENT
  Age: 80 Year
  Sex: Female

DRUGS (6)
  1. MUCOSTA [Suspect]
     Active Substance: REBAMIPIDE
     Indication: GASTRIC ULCER
     Route: 048
     Dates: end: 20160811
  2. VOLTAREN [Suspect]
     Active Substance: DICLOFENAC SODIUM
     Indication: PAIN
     Route: 048
     Dates: end: 20160811
  3. BUCILLAMINE [Suspect]
     Active Substance: BUCILLAMINE
     Indication: RHEUMATOID ARTHRITIS
     Route: 048
     Dates: end: 20160811
  4. PREDNISOLONE. [Suspect]
     Active Substance: PREDNISOLONE
     Indication: RHEUMATOID ARTHRITIS
     Route: 048
     Dates: end: 20160811
  5. SIMPONI [Suspect]
     Active Substance: GOLIMUMAB
     Indication: RHEUMATOID ARTHRITIS
     Route: 058
     Dates: start: 201504, end: 20160727
  6. DEPAS [Suspect]
     Active Substance: ETIZOLAM
     Indication: MENTAL DISORDER
     Route: 048
     Dates: end: 20160811

REACTIONS (1)
  - Fall [Fatal]

NARRATIVE: CASE EVENT DATE: 20160811
